FAERS Safety Report 9663169 (Version 1)
Quarter: 2013Q4

REPORT INFORMATION
  Report Type: Spontaneous
  Country: US (occurrence: US)
  Receive Date: 20131101
  Receipt Date: 20131101
  Transmission Date: 20140711
  Serious: No
  Sender: FDA-Public Use
  Company Number: US-B.I. PHARMACEUTICALS,INC./RIDGEFIELD-2013-BI-33734BP

PATIENT
  Sex: Female
  Weight: 93 kg

DRUGS (1)
  1. SPIRIVA [Suspect]
     Indication: ALPHA-1 ANTI-TRYPSIN DEFICIENCY
     Dosage: 18 MCG
     Route: 055
     Dates: start: 2004

REACTIONS (1)
  - Off label use [Not Recovered/Not Resolved]
